FAERS Safety Report 7950430-6 (Version None)
Quarter: 2011Q4

REPORT INFORMATION
  Report Type: 
  Country: None (occurrence: None)
  Receive Date: 20111130
  Receipt Date: 20111116
  Transmission Date: 20120403
  Serious: Yes (Hospitalization)
  Sender: FDA-Public Use
  Company Number: US-MYLANLABS-2011S1024163

PATIENT
  Age: 48 Year
  Sex: Female

DRUGS (2)
  1. LAMOTRIGINE [Suspect]
     Indication: OVERDOSE
     Dosage: 7.5MG
     Route: 048
  2. LAMOTRIGINE [Suspect]
     Route: 065

REACTIONS (9)
  - STATUS EPILEPTICUS [None]
  - TACHYCARDIA [None]
  - ANTICONVULSANT DRUG LEVEL ABOVE THERAPEUTIC [None]
  - OVERDOSE [None]
  - GRAND MAL CONVULSION [None]
  - CIRCULATORY COLLAPSE [None]
  - HYPOXIC-ISCHAEMIC ENCEPHALOPATHY [None]
  - CLONUS [None]
  - NODAL ARRHYTHMIA [None]
